FAERS Safety Report 6149159-9 (Version None)
Quarter: 2009Q2

REPORT INFORMATION
  Report Type: 
  Country: None (occurrence: None)
  Receive Date: 20090407
  Receipt Date: 20090316
  Transmission Date: 20091009
  Serious: Yes (Other)
  Sender: FDA-Public Use
  Company Number: 2009S1004526

PATIENT
  Age: 37 Year
  Sex: Male

DRUGS (3)
  1. INFLIXIMAB (INFLIXIMAB) [Suspect]
     Indication: RHEUMATOID ARTHRITIS
     Dosage: 3 MG/KG
  2. METHOTREXATE [Suspect]
     Indication: RHEUMATOID ARTHRITIS
     Dosage: 10 MG;WEEKLY
  3. PREDNISONE [Concomitant]

REACTIONS (1)
  - PULMONARY TUBERCULOSIS [None]
